FAERS Safety Report 7432396-0 (Version None)
Quarter: 2011Q2

REPORT INFORMATION
  Report Type: 
  Country: None (occurrence: None)
  Receive Date: 20110415
  Receipt Date: 20110411
  Transmission Date: 20111010
  Serious: Yes (Hospitalization, Disabling, Other)
  Sender: FDA-Public Use
  Company Number: 2010SP054450

PATIENT
  Age: 26 Year
  Sex: Female
  Weight: 68.0396 kg

DRUGS (2)
  1. NUVARING [Suspect]
     Indication: CONTRACEPTION
     Dosage: 1 DF;Q3W;VAG
     Route: 067
     Dates: start: 20080201, end: 20081027
  2. ADDERALL XR 10 [Concomitant]

REACTIONS (20)
  - MUSCLE SPASMS [None]
  - UNINTENDED PREGNANCY [None]
  - MUSCLE STRAIN [None]
  - HYPERCOAGULATION [None]
  - DYSPNOEA [None]
  - VIRAL INFECTION [None]
  - MIGRAINE [None]
  - PULMONARY EMBOLISM [None]
  - PULMONARY INFARCTION [None]
  - POST-TRAUMATIC STRESS DISORDER [None]
  - PROTHROMBIN TIME SHORTENED [None]
  - MULTIPLE INJURIES [None]
  - ALCOHOL USE [None]
  - INSOMNIA [None]
  - PAINFUL RESPIRATION [None]
  - PLEURAL FIBROSIS [None]
  - DRUG EXPOSURE BEFORE PREGNANCY [None]
  - ANTITHROMBIN III DECREASED [None]
  - IMPAIRED WORK ABILITY [None]
  - ATTENTION DEFICIT/HYPERACTIVITY DISORDER [None]
